FAERS Safety Report 4695443-5 (Version None)
Quarter: 2005Q2

REPORT INFORMATION
  Report Type: 
  Country: None (occurrence: None)
  Receive Date: 20050617
  Receipt Date: 20050617
  Transmission Date: 20051028
  Serious: Yes (Other)
  Sender: FDA-Public Use
  Company Number: None

PATIENT
  Age: 49 Year
  Sex: Male
  Weight: 115 kg

DRUGS (8)
  1. SIMVASTATIN [Suspect]
  2. COLESTIPOL HCL [Concomitant]
  3. HYDROCORTISONE [Concomitant]
  4. LISINOPRIL [Concomitant]
  5. LORATADINE [Concomitant]
  6. OMEPRAZOLE [Concomitant]
  7. TRAMADOL HCL [Concomitant]
  8. CLOTRIMAZOLE [Concomitant]

REACTIONS (1)
  - MYALGIA [None]
